FAERS Safety Report 7723515-7 (Version None)
Quarter: 2011Q3

REPORT INFORMATION
  Report Type: 
  Country: None (occurrence: None)
  Receive Date: 20110901
  Receipt Date: 20110826
  Transmission Date: 20111222
  Serious: Yes (Other)
  Sender: FDA-Public Use
  Company Number: CA-JNJFOC-20110812638

PATIENT
  Sex: Female
  Weight: 104 kg

DRUGS (11)
  1. CELEBREX [Concomitant]
  2. TRIAZIDE [Concomitant]
  3. MERCAPTOPURINE [Concomitant]
  4. CITALOPRAM [Concomitant]
  5. PREVACID [Concomitant]
  6. TYLENOL-500 [Concomitant]
  7. OXAZEPAM [Concomitant]
  8. PREDNISONE [Concomitant]
  9. IMURAN [Concomitant]
  10. REMICADE [Suspect]
     Indication: CROHN'S DISEASE
     Route: 042
     Dates: start: 20101101
  11. CRESTOR [Concomitant]

REACTIONS (2)
  - URINARY TRACT INFECTION [None]
  - FISTULA [None]
